FAERS Safety Report 8467857-9 (Version None)
Quarter: 2012Q2

REPORT INFORMATION
  Report Type: 
  Country: None (occurrence: None)
  Receive Date: 20120626
  Receipt Date: 20120621
  Transmission Date: 20120825
  Serious: Yes (Other)
  Sender: FDA-Public Use
  Company Number: BW-GLAXOSMITHKLINE-B0809230A

PATIENT
  Age: 42 Year
  Sex: Male
  Weight: 200 kg

DRUGS (4)
  1. FLUTICASONE FUROATE [Suspect]
     Indication: RHINITIS ALLERGIC
     Route: 065
     Dates: start: 20120315, end: 20120615
  2. ATOVAQUONE [Concomitant]
     Indication: MALARIA PROPHYLAXIS
     Dosage: 250MG PER DAY
     Route: 065
     Dates: start: 20110501
  3. FEXOFENADINE [Concomitant]
     Indication: RHINITIS ALLERGIC
     Dosage: 180MG PER DAY
     Route: 065
  4. NASONEX [Concomitant]

REACTIONS (2)
  - DIZZINESS [None]
  - VISION BLURRED [None]
